FAERS Safety Report 13737770 (Version 1)
Quarter: 2017Q3

REPORT INFORMATION
  Report Type: Spontaneous
  Country: US (occurrence: US)
  Receive Date: 20170710
  Receipt Date: 20170710
  Transmission Date: 20171127
  Serious: Yes (Hospitalization, Other)
  Sender: FDA-Public Use
  Company Number: US-SAOL THERAPEUTICS-2016SAO00488

PATIENT
  Age: 58 Year
  Sex: Male
  Weight: 120.2 kg

DRUGS (4)
  1. BACLOFEN. [Suspect]
     Active Substance: BACLOFEN
     Indication: MUSCLE SPASTICITY
     Dosage: 621.9 ?G, \DAY
     Route: 037
  2. VALIUM [Concomitant]
     Active Substance: DIAZEPAM
  3. ORAL BACLOFEN [Concomitant]
     Active Substance: BACLOFEN
     Dosage: 20 MG, 3X/DAY
     Route: 048
  4. BACLOFEN. [Suspect]
     Active Substance: BACLOFEN
     Dosage: 922 ?G, \DAY
     Route: 037

REACTIONS (6)
  - Pruritus [Unknown]
  - Device damage [Recovered/Resolved]
  - Muscle spasticity [Unknown]
  - Piloerection [Unknown]
  - Toxicity to various agents [Unknown]
  - Device malfunction [Unknown]

NARRATIVE: CASE EVENT DATE: 201005
